FAERS Safety Report 7325867-9 (Version None)
Quarter: 2011Q1

REPORT INFORMATION
  Report Type: 
  Country: None (occurrence: None)
  Receive Date: 20110302
  Receipt Date: 20110224
  Transmission Date: 20110831
  Serious: Yes (Other)
  Sender: FDA-Public Use
  Company Number: US-PFIZER INC-2011040841

PATIENT
  Sex: Female

DRUGS (8)
  1. POTASSIUM CHLORIDE [Concomitant]
     Indication: MINERAL SUPPLEMENTATION
     Dosage: 30 MEQ, 2X/DAY
     Route: 048
  2. GABAPENTIN [Suspect]
     Indication: MUSCULOSKELETAL PAIN
     Dosage: 100 MG, 3X/DAY
     Route: 048
     Dates: start: 20060101
  3. VITAMIN D [Concomitant]
     Indication: VITAMIN SUPPLEMENTATION
     Dosage: 2000 IU, 1X/DAY
     Route: 048
  4. LORAZEPAM [Concomitant]
     Indication: POST-TRAUMATIC STRESS DISORDER
     Dosage: 1 MG, 1X/DAY
     Route: 048
  5. LYRICA [Suspect]
     Indication: MUSCULOSKELETAL PAIN
     Dosage: 75 MG, 2X/DAY
     Route: 048
     Dates: start: 20070101, end: 20081001
  6. TRAZODONE [Concomitant]
     Indication: INSOMNIA
     Dosage: 150 MG, 1X/DAY
     Route: 048
  7. METHOCARBAMOL [Concomitant]
     Indication: MUSCLE DISORDER
     Dosage: 750 MG, 3X/DAY
     Route: 048
  8. ZOLOFT [Concomitant]
     Indication: NEUROPATHY PERIPHERAL
     Dosage: 100 MG, 1X/DAY
     Route: 048

REACTIONS (1)
  - HERPES ZOSTER [None]
